FAERS Safety Report 9812333 (Version 1)
Quarter: 2014Q1

REPORT INFORMATION
  Report Type: Report from Study
  Country: US (occurrence: US)
  Receive Date: 20140113
  Receipt Date: 20140113
  Transmission Date: 20141002
  Serious: Yes (Hospitalization)
  Sender: FDA-Public Use
  Company Number: US-ROCHE-1318609

PATIENT
  Age: 58 Year
  Sex: Female

DRUGS (4)
  1. LUCENTIS [Suspect]
     Indication: DIABETIC RETINAL OEDEMA
     Route: 050
     Dates: start: 20071010
  2. LUCENTIS [Suspect]
     Indication: AGE-RELATED MACULAR DEGENERATION
  3. BETADINE [Concomitant]
  4. POTASSIUM CHLORIDE [Concomitant]

REACTIONS (14)
  - Malaise [Unknown]
  - Vision blurred [Unknown]
  - Vitreous detachment [Unknown]
  - Retinal tear [Unknown]
  - Corneal pigmentation [Unknown]
  - Subretinal fluid [Unknown]
  - Macular scar [Unknown]
  - Retinal pigment epitheliopathy [Unknown]
  - Visual field defect [Unknown]
  - Detachment of retinal pigment epithelium [Unknown]
  - Cataract nuclear [Unknown]
  - Borderline glaucoma [Unknown]
  - Disease progression [Unknown]
  - Vitreous floaters [Unknown]
